FAERS Safety Report 13818655 (Version 3)
Quarter: 2017Q4

REPORT INFORMATION
  Report Type: Spontaneous
  Country: AU (occurrence: AU)
  Receive Date: 20170731
  Receipt Date: 20171031
  Transmission Date: 20180320
  Serious: Yes (Hospitalization)
  Sender: FDA-Public Use
  Company Number: AU-MYLANLABS-2017M1044817

PATIENT
  Sex: Male

DRUGS (1)
  1. VEDAFIL [Suspect]
     Active Substance: SILDENAFIL CITRATE
     Indication: PRODUCT USED FOR UNKNOWN INDICATION
     Dosage: UNK

REACTIONS (7)
  - Abdominal pain upper [Recovered/Resolved]
  - Pain [Recovered/Resolved]
  - Adverse drug reaction [Unknown]
  - Nausea [Recovered/Resolved]
  - Bedridden [Recovered/Resolved]
  - Vomiting [Recovered/Resolved]
  - Discomfort [Recovered/Resolved]

NARRATIVE: CASE EVENT DATE: 201705
